FAERS Safety Report 8811527 (Version 2)
Quarter: 2014Q1

REPORT INFORMATION
  Report Type: Spontaneous
  Country: US (occurrence: US)
  Receive Date: 20120927
  Receipt Date: 20140206
  Transmission Date: 20141002
  Serious: No
  Sender: FDA-Public Use
  Company Number: US-JNJFOC-20120901313

PATIENT
  Sex: Female
  Weight: 77.11 kg

DRUGS (10)
  1. DURAGESIC [Suspect]
     Indication: PAIN
     Route: 062
     Dates: start: 2012
  2. DURAGESIC [Suspect]
     Indication: PAIN
     Route: 062
     Dates: start: 2011
  3. DURAGESIC [Suspect]
     Indication: PAIN
     Route: 062
     Dates: start: 2012, end: 2012
  4. DURAGESIC [Suspect]
     Indication: PAIN
     Route: 062
     Dates: start: 2010, end: 2012
  5. LYRICA [Concomitant]
     Indication: FIBROMYALGIA
     Route: 065
  6. CYMBALTA [Concomitant]
     Indication: FIBROMYALGIA
     Route: 065
  7. WELLBUTRIN [Concomitant]
     Indication: DEPRESSION
     Route: 065
  8. NEXIUM [Concomitant]
     Indication: GASTROOESOPHAGEAL REFLUX DISEASE
     Route: 048
  9. LIPITOR [Concomitant]
     Indication: BLOOD CHOLESTEROL
     Route: 048
  10. VOLTAREN [Concomitant]
     Indication: BREAKTHROUGH PAIN
     Route: 061

REACTIONS (6)
  - Product quality issue [Unknown]
  - Wrong technique in drug usage process [Not Recovered/Not Resolved]
  - Hyperhidrosis [Not Recovered/Not Resolved]
  - Pain [Not Recovered/Not Resolved]
  - Adverse event [Unknown]
  - Confusional state [Not Recovered/Not Resolved]
